FAERS Safety Report 8361304-3 (Version None)
Quarter: 2012Q2

REPORT INFORMATION
  Report Type: 
  Country: None (occurrence: None)
  Receive Date: 20120514
  Receipt Date: 20120502
  Transmission Date: 20120825
  Serious: Yes (Hospitalization)
  Sender: FDA-Public Use
  Company Number: 2012SP024516

PATIENT
  Age: 67 Year
  Sex: Female

DRUGS (9)
  1. FENTANYL-100 [Suspect]
     Indication: PRODUCT USED FOR UNKNOWN INDICATION
     Dosage: 100 MCG;;IV
     Route: 042
  2. ACETAMINOPHEN AND HYDROCODONE BITARTRATE [Concomitant]
  3. MIDAZOLAM [Suspect]
     Indication: PRODUCT USED FOR UNKNOWN INDICATION
     Dosage: 2 MG;;IV
     Route: 042
  4. LIDOCAINE [Suspect]
     Indication: LOCAL ANAESTHESIA
     Dosage: 3 ML;
  5. FENTANYL-100 [Concomitant]
  6. PREDNISONE [Concomitant]
  7. BETAMETHASONE SODIUM PHOSPHATE [Suspect]
     Indication: SPINAL PAIN
     Dosage: 12 MG;
  8. METHOTREXATE [Concomitant]
  9. ENBREL [Concomitant]

REACTIONS (12)
  - HYPERTHERMIA [None]
  - BRAIN INJURY [None]
  - ANAEMIA [None]
  - VENTRICULAR EXTRASYSTOLES [None]
  - CARDIO-RESPIRATORY ARREST [None]
  - CEREBRAL HYPOPERFUSION [None]
  - RESPIRATORY ALKALOSIS [None]
  - HYPOXIA [None]
  - UNRESPONSIVE TO STIMULI [None]
  - PNEUMOCEPHALUS [None]
  - ELECTROCARDIOGRAM P PULMONALE [None]
  - BRADYCARDIA [None]
